FAERS Safety Report 7384346-3 (Version None)
Quarter: 2011Q1

REPORT INFORMATION
  Report Type: 
  Country: None (occurrence: None)
  Receive Date: 20110330
  Receipt Date: 20100923
  Transmission Date: 20110831
  Serious: Yes (Death, Hospitalization, Other)
  Sender: FDA-Public Use
  Company Number: US-BAYER-201032460NA

PATIENT
  Sex: Female
  Weight: 81.633 kg

DRUGS (11)
  1. METFORMIN [Concomitant]
     Dosage: UNK
  2. UNCODEABLE ^UNCLASSIFIABLE^ [Concomitant]
  3. YASMIN [Suspect]
     Dosage: UNK
     Dates: start: 20080407
  4. ADVIL [IBUPROFEN] [Concomitant]
  5. UNCODEABLE ^UNCLASSIFIABLE^ [Concomitant]
  6. LEXAPRO [Concomitant]
     Dosage: UNK
  7. YASMIN [Suspect]
     Dosage: UNK UNK, UNK
     Route: 048
     Dates: start: 20070503, end: 20080120
  8. ASCORBIC ACID [Concomitant]
  9. ASPIRIN [Concomitant]
  10. OCELLA [Suspect]
     Dosage: UNK UNK, UNK
     Route: 048
     Dates: start: 20081119, end: 20090831
  11. YAZ [Suspect]
     Indication: PRODUCT USED FOR UNKNOWN INDICATION
     Route: 048

REACTIONS (12)
  - EMBOLISM ARTERIAL [None]
  - HYPERTENSION [None]
  - THROMBOPHLEBITIS [None]
  - CEREBRAL THROMBOSIS [None]
  - PULMONARY EMBOLISM [None]
  - MYOCARDIAL INFARCTION [None]
  - THROMBOSIS [None]
  - CEREBRAL HAEMORRHAGE [None]
  - HEPATIC ADENOMA [None]
  - BENIGN HEPATIC NEOPLASM [None]
  - GALLBLADDER DISORDER [None]
  - DEEP VEIN THROMBOSIS [None]
